FAERS Safety Report 10038676 (Version 1)
Quarter: 2014Q1

REPORT INFORMATION
  Report Type: Spontaneous
  Country: US (occurrence: None)
  Receive Date: 20140306
  Receipt Date: 20140306
  Transmission Date: 20141002
  Serious: Yes (Other)
  Sender: FDA-Public Use
  Company Number: 163-21880-13073893

PATIENT
  Age: 86 Year
  Sex: Male

DRUGS (7)
  1. REVLIMID (LENALIDOMIDE) (25 MILLIGRAM, CAPSULES) [Suspect]
     Indication: PLASMA CELL MYELOMA
     Dosage: 21 IN 28 D
     Route: 048
     Dates: start: 20130508, end: 20130702
  2. DIGOXIN (DIGOXIN) [Concomitant]
  3. CARDIZEM (DILTIAZEM HYDROCHLORIDE) [Concomitant]
  4. LORTAB (VICODIN) [Concomitant]
  5. ASA (ACETYLSALICYLIC ACID) [Concomitant]
  6. MVT (MULTIVITAMIN) (MULTIVITAMINS) [Concomitant]
  7. DECADRON (DEXAMETHASONE) [Concomitant]

REACTIONS (11)
  - Deep vein thrombosis [None]
  - Fatigue [None]
  - Apathy [None]
  - Tinnitus [None]
  - Neuropathy peripheral [None]
  - Muscle spasms [None]
  - Dyspnoea [None]
  - Headache [None]
  - Dizziness [None]
  - Asthenia [None]
  - Somnolence [None]
